FAERS Safety Report 5871739-6 (Version None)
Quarter: 2008Q3

REPORT INFORMATION
  Report Type: 
  Country: None (occurrence: None)
  Receive Date: 20080905
  Receipt Date: 20080903
  Transmission Date: 20090109
  Serious: Yes (Life-Threatening, Other)
  Sender: FDA-Public Use
  Company Number: FR-BRISTOL-MYERS SQUIBB COMPANY-14323737

PATIENT
  Age: 28 Year
  Sex: Male

DRUGS (5)
  1. ABILIFY [Suspect]
     Indication: SCHIZOPHRENIA
     Dates: start: 20080826
  2. ZYPREXA [Concomitant]
     Dosage: 2 TABS
  3. LOXAPINE HCL [Concomitant]
     Dosage: 2 TABS
  4. LEPTICUR [Concomitant]
  5. IMOVANE [Concomitant]

REACTIONS (3)
  - FOOT FRACTURE [None]
  - SPINAL FRACTURE [None]
  - SUICIDE ATTEMPT [None]
